FAERS Safety Report 16058386 (Version 4)
Quarter: 2025Q3

REPORT INFORMATION
  Report Type: Spontaneous
  Country: US (occurrence: US)
  Receive Date: 20190311
  Receipt Date: 20250821
  Transmission Date: 20251021
  Serious: No
  Sender: BAYER HEALTHCARE PHARMACEUTICALS INC.
  Company Number: US-BAYER-2019-049570

PATIENT
  Age: 68 Year
  Sex: Female

DRUGS (1)
  1. ESTRADIOL [Suspect]
     Active Substance: ESTRADIOL
     Indication: Hysterectomy
     Route: 062

REACTIONS (10)
  - Pruritus [None]
  - Drug ineffective [None]
  - Product availability issue [None]
  - Product complaint [None]
  - Device adhesion issue [None]
  - Product physical issue [None]
  - Product quality issue [None]
  - Product dose omission issue [None]
  - Device defective [None]
  - Drug effect less than expected [None]
